FAERS Safety Report 6558206-1 (Version None)
Quarter: 2010Q1

REPORT INFORMATION
  Report Type: 
  Country: None (occurrence: None)
  Receive Date: 20100127
  Receipt Date: 20100127
  Transmission Date: 20100710
  Serious: Yes (Hospitalization)
  Sender: FDA-Public Use
  Company Number: None

PATIENT
  Age: 82 Year
  Sex: Male
  Weight: 71 kg

DRUGS (16)
  1. EXELON [Suspect]
     Dosage: 4.6 MG XR EOD TOPICALLY, CHRONIC
     Route: 061
  2. PLAVIX [Concomitant]
  3. ASPIRIN [Concomitant]
  4. COREG [Concomitant]
  5. RANITIDINE [Concomitant]
  6. LACTULOSE [Concomitant]
  7. LASIX [Concomitant]
  8. VIT D [Concomitant]
  9. LISINOPRIL [Concomitant]
  10. ZOLOFT [Concomitant]
  11. GLIPIZIDE [Concomitant]
  12. SIMVASTATIN [Concomitant]
  13. HALOPERIDOL [Concomitant]
  14. LEVAQUIN [Concomitant]
  15. MAALOX [Concomitant]
  16. ZYPREXA [Concomitant]

REACTIONS (5)
  - CONDITION AGGRAVATED [None]
  - CONFUSIONAL STATE [None]
  - DELIRIUM [None]
  - HYPOTENSION [None]
  - RENAL FAILURE ACUTE [None]
